FAERS Safety Report 7379538-3 (Version None)
Quarter: 2011Q1

REPORT INFORMATION
  Report Type: 
  Country: None (occurrence: None)
  Receive Date: 20110329
  Receipt Date: 20110318
  Transmission Date: 20110831
  Serious: Yes (Hospitalization)
  Sender: FDA-Public Use
  Company Number: US-BIOGENIDEC-2010BI045266

PATIENT
  Age: 52 Year
  Sex: Female
  Weight: 102 kg

DRUGS (3)
  1. AVONEX [Concomitant]
     Route: 030
     Dates: start: 19990301, end: 20000501
  2. TYSABRI [Suspect]
     Indication: MULTIPLE SCLEROSIS
     Route: 042
     Dates: start: 20090903
  3. AVONEX [Concomitant]
     Indication: MULTIPLE SCLEROSIS
     Route: 030
     Dates: start: 20090901

REACTIONS (10)
  - HYPERSENSITIVITY [None]
  - OSTEONECROSIS [None]
  - WEIGHT INCREASED [None]
  - INFUSION SITE PRURITUS [None]
  - FATIGUE [None]
  - URINARY INCONTINENCE [None]
  - ANAEMIA [None]
  - POST PROCEDURAL COMPLICATION [None]
  - URINARY TRACT INFECTION [None]
  - LOSS OF CONTROL OF LEGS [None]
